FAERS Safety Report 13399695 (Version 2)
Quarter: 2017Q2

REPORT INFORMATION
  Report Type: Report from Study
  Country: DE (occurrence: DE)
  Receive Date: 20170404
  Receipt Date: 20170504
  Transmission Date: 20170830
  Serious: Yes (Hospitalization)
  Sender: FDA-Public Use
  Company Number: DE-ACTELION-A-CH2017-151508

PATIENT
  Age: 55 Year
  Sex: Female

DRUGS (11)
  1. TRACLEER [Interacting]
     Active Substance: BOSENTAN
     Dosage: 62.5 MG, BID
     Route: 048
     Dates: start: 20140320, end: 20141015
  2. TRACLEER [Interacting]
     Active Substance: BOSENTAN
     Dosage: 62.5 MG, OD
     Route: 048
     Dates: start: 20161110, end: 20161215
  3. VIGANTOLETTEN [Concomitant]
     Active Substance: CHOLECALCIFEROL
     Indication: PRODUCT USED FOR UNKNOWN INDICATION
     Dosage: UNK, OD
  4. MTX [Interacting]
     Active Substance: METHOTREXATE SODIUM
     Indication: SCLERODERMA ASSOCIATED DIGITAL ULCER
     Dosage: 12.5 UNK, Q1WEEK
     Route: 058
  5. VENLAFAXIN [Concomitant]
     Active Substance: VENLAFAXINE HYDROCHLORIDE
     Indication: PRODUCT USED FOR UNKNOWN INDICATION
     Dosage: 75 ?G, UNK
  6. FOLICUM [Concomitant]
  7. L-THYROXIN [Concomitant]
     Active Substance: LEVOTHYROXINE SODIUM
     Indication: HYPOTHYROIDISM
     Dosage: 125 ?G, OD
  8. TILIDIN [Concomitant]
     Active Substance: NALOXONE HYDROCHLORIDE\TILIDINE HYDROCHLORIDE
     Indication: PRODUCT USED FOR UNKNOWN INDICATION
     Dosage: 50 MG, PRN
  9. TRACLEER [Suspect]
     Active Substance: BOSENTAN
     Indication: SCLERODERMA ASSOCIATED DIGITAL ULCER
     Dosage: 187.5 MG, BID
     Route: 048
     Dates: start: 20141016, end: 20160908
  10. ESOMEPRAZOL [Concomitant]
     Active Substance: ESOMEPRAZOLE
     Indication: PRODUCT USED FOR UNKNOWN INDICATION
     Dosage: 20 MG, BID
  11. RESOLOR [Concomitant]
     Active Substance: PRUCALOPRIDE SUCCINATE
     Indication: PRODUCT USED FOR UNKNOWN INDICATION
     Dosage: 2 MG, UNK

REACTIONS (14)
  - Autoimmune hepatitis [Recovered/Resolved]
  - Jaundice [Recovered/Resolved]
  - Drug interaction [Unknown]
  - Biopsy liver [Recovered/Resolved]
  - Cachexia [Recovered/Resolved]
  - Decreased appetite [Recovered/Resolved]
  - Fatigue [Recovered/Resolved]
  - Ocular icterus [Recovered/Resolved]
  - Pruritus [Recovered/Resolved]
  - Drug-induced liver injury [Recovered/Resolved]
  - Nutritional condition abnormal [Recovered/Resolved]
  - Hepatic enzyme increased [Recovered/Resolved]
  - Asthenia [Recovered/Resolved]
  - Night sweats [Recovered/Resolved]

NARRATIVE: CASE EVENT DATE: 201608
